FAERS Safety Report 17886419 (Version 1)
Quarter: 2020Q2

REPORT INFORMATION
  Report Type: Report from Study
  Country: AR (occurrence: AR)
  Receive Date: 20200611
  Receipt Date: 20200611
  Transmission Date: 20200714
  Serious: Yes (Death, Hospitalization, Other)
  Sender: FDA-Public Use
  Company Number: PHHY2019AR130252

PATIENT
  Age: 76 Year
  Sex: Male

DRUGS (4)
  1. TAFINLAR [Suspect]
     Active Substance: DABRAFENIB MESYLATE
     Indication: METASTASES TO LUNG
     Dosage: 300 MG, QD
     Route: 065
     Dates: start: 20181205, end: 201912
  2. MEKINIST [Suspect]
     Active Substance: TRAMETINIB DIMETHYL SULFOXIDE
     Indication: METASTATIC MALIGNANT MELANOMA
  3. MEKINIST [Suspect]
     Active Substance: TRAMETINIB DIMETHYL SULFOXIDE
     Indication: METASTASES TO LUNG
     Dosage: 2 MG, QD
     Route: 065
     Dates: start: 20181205, end: 201912
  4. TAFINLAR [Suspect]
     Active Substance: DABRAFENIB MESYLATE
     Indication: METASTATIC MALIGNANT MELANOMA

REACTIONS (9)
  - Weight decreased [Recovering/Resolving]
  - Malignant neoplasm progression [Recovering/Resolving]
  - Mental disorder [Unknown]
  - Arrhythmia [Recovering/Resolving]
  - Inappropriate schedule of product administration [Unknown]
  - Stress [Recovering/Resolving]
  - General physical health deterioration [Fatal]
  - Concomitant disease aggravated [Recovering/Resolving]
  - Metastatic malignant melanoma [Recovering/Resolving]

NARRATIVE: CASE EVENT DATE: 201812
